FAERS Safety Report 6552706-6 (Version None)
Quarter: 2010Q1

REPORT INFORMATION
  Report Type: 
  Country: None (occurrence: None)
  Receive Date: 20100126
  Receipt Date: 20100126
  Transmission Date: 20100710
  Serious: Yes (Other)
  Sender: FDA-Public Use
  Company Number: BR-B.I. PHARMACEUTICALS,INC./RIDGEFIELD-2010-BR-00063BR

PATIENT
  Sex: Female

DRUGS (3)
  1. SPIRIVA [Suspect]
     Indication: CHRONIC OBSTRUCTIVE PULMONARY DISEASE
     Dosage: 18 MCG
     Route: 055
  2. SYMBICORT [Concomitant]
     Indication: ASTHMA
     Dosage: NR
  3. DIOVAN [Concomitant]
     Indication: HYPERTENSION
     Dosage: NR

REACTIONS (1)
  - BREAST CANCER [None]
